FAERS Safety Report 7930708-2 (Version None)
Quarter: 2011Q4

REPORT INFORMATION
  Report Type: 
  Country: None (occurrence: None)
  Receive Date: 20111121
  Receipt Date: 20111114
  Transmission Date: 20120403
  Serious: Yes (Other)
  Sender: FDA-Public Use
  Company Number: JP-PFIZER INC-2011279767

PATIENT
  Age: 19 Year
  Sex: Female

DRUGS (4)
  1. METHYLPREDNISOLONE SODIUM SUCCINATE [Suspect]
     Dosage: 500 MG, PER DAY
  2. PREDNISOLONE [Suspect]
  3. METHYLPREDNISOLONE SODIUM SUCCINATE [Suspect]
     Dosage: 1 G, UNK
     Route: 042
  4. METHYLPREDNISOLONE [Suspect]
     Dosage: 24 MG, PER DAY
     Route: 048

REACTIONS (5)
  - MANIA [None]
  - SUICIDAL IDEATION [None]
  - HALLUCINATION, AUDITORY [None]
  - PERSECUTORY DELUSION [None]
  - DEPRESSION [None]
